FAERS Safety Report 18034216 (Version 2)
Quarter: 2020Q3

REPORT INFORMATION
  Report Type: Spontaneous
  Country: DE (occurrence: DE)
  Receive Date: 20200716
  Receipt Date: 20200728
  Transmission Date: 20201103
  Serious: Yes (Death, Hospitalization)
  Sender: FDA-Public Use
  Company Number: DE-MYLANLABS-2020M1063618

PATIENT
  Sex: Male

DRUGS (12)
  1. IFOSFAMIDE. [Suspect]
     Active Substance: IFOSFAMIDE
     Indication: HYPERTENSION
     Dosage: UNK
  2. RITUXIMAB. [Suspect]
     Active Substance: RITUXIMAB
     Indication: HYPERTENSION
     Dosage: UNK
  3. RITUXIMAB. [Suspect]
     Active Substance: RITUXIMAB
     Indication: DIFFUSE LARGE B-CELL LYMPHOMA
     Dosage: PART OF R?DEVIC TREATMENT FOR SEVERAL MONTHS(LAST THERAPY CYCLE WAS ADMINISTERED2WEEKS BEFORE
  4. IBRUTINIB [Suspect]
     Active Substance: IBRUTINIB
     Indication: DIFFUSE LARGE B-CELL LYMPHOMA
     Dosage: UNK
     Route: 065
  5. DEXAMETHASON                       /00016001/ [Suspect]
     Active Substance: DEXAMETHASONE
     Indication: DIFFUSE LARGE B-CELL LYMPHOMA
     Dosage: PART OF R?DEVIC TREATMENT(FOR SEVERAL MONTHS), THE LAST DOSE WAS ADMINISTERED2 WEEKSBEFORE SAR
  6. ETOPOSIDE. [Suspect]
     Active Substance: ETOPOSIDE
     Indication: HYPERTENSION
     Dosage: UNK
  7. CARBOPLATIN. [Suspect]
     Active Substance: CARBOPLATIN
     Indication: DIFFUSE LARGE B-CELL LYMPHOMA
     Dosage: PART OF R?DEVIC TREATMENT FOR SEVERAL MONTHS(LAST THERAPY CYCLE WAS ADMINISTERED2WEEKS BEFORE
  8. CARBOPLATIN. [Suspect]
     Active Substance: CARBOPLATIN
     Indication: HYPERTENSION
     Dosage: UNK
  9. ETOPOSIDE. [Suspect]
     Active Substance: ETOPOSIDE
     Indication: DIFFUSE LARGE B-CELL LYMPHOMA
     Dosage: PART OF R?DEVIC TREATMENT FOR SEVERAL MONTH(LAST THERAPY CYCLE WAS ADMINISTERED2WEEKS BEFORE
     Route: 065
  10. IFOSFAMIDE. [Suspect]
     Active Substance: IFOSFAMIDE
     Indication: DIFFUSE LARGE B-CELL LYMPHOMA
     Dosage: PART OF R?DEVIC TREATMENT FOR SEVERAL MONTHS(LAST THERAPY CYCLE WAS ADMINISTERED2WEEKS BEFORE
  11. DEXAMETHASON                       /00016001/ [Suspect]
     Active Substance: DEXAMETHASONE
     Indication: HYPERTENSION
     Dosage: UNK
  12. PIPERACILLIN AND TAZOBACTAM [Concomitant]
     Active Substance: PIPERACILLIN SODIUM\TAZOBACTAM SODIUM
     Dosage: UNK
     Route: 065

REACTIONS (4)
  - COVID-19 pneumonia [Fatal]
  - Off label use [Unknown]
  - Respiratory failure [Fatal]
  - Pyrexia [Unknown]
